FAERS Safety Report 24755101 (Version 1)
Quarter: 2024Q4

REPORT INFORMATION
  Report Type: Spontaneous
  Country: PL (occurrence: PL)
  Receive Date: 20241219
  Receipt Date: 20241219
  Transmission Date: 20250115
  Serious: Yes (Other)
  Sender: GILEAD
  Company Number: PL-GILEAD-2024-0696749

PATIENT
  Age: 57 Year
  Sex: Female

DRUGS (1)
  1. TRODELVY [Suspect]
     Active Substance: SACITUZUMAB GOVITECAN-HZIY
     Indication: Triple negative breast cancer
     Dosage: 10 MG/KG, ON DAYS 1 AND 8 OF 21-DAY CYCLE
     Route: 042

REACTIONS (5)
  - Disease progression [Unknown]
  - Neutropenia [Recovered/Resolved]
  - Transaminases increased [Unknown]
  - Bone pain [Unknown]
  - Asthenia [Unknown]
